FAERS Safety Report 6140354-1 (Version None)
Quarter: 2009Q2

REPORT INFORMATION
  Report Type: 
  Country: None (occurrence: None)
  Receive Date: 20090401
  Receipt Date: 20090331
  Transmission Date: 20091009
  Serious: Yes (Death, Hospitalization)
  Sender: FDA-Public Use
  Company Number: JP-B.I. PHARMACEUTICALS,INC./RIDGEFIELD-2008-BP-13900YA

PATIENT
  Sex: Male
  Weight: 60 kg

DRUGS (18)
  1. TAMSULOSIN HCL [Suspect]
     Indication: BENIGN PROSTATIC HYPERPLASIA
     Dosage: .2MG
     Route: 048
     Dates: end: 20080318
  2. LENDORMIN [Suspect]
     Indication: INSOMNIA
     Route: 048
     Dates: start: 20060601, end: 20080318
  3. LENDORMIN [Suspect]
     Indication: DEPRESSION
  4. MYSLEE [Suspect]
     Indication: INSOMNIA
     Dosage: 5MG
     Route: 048
     Dates: start: 20060601, end: 20080318
  5. MYSLEE [Suspect]
     Indication: DEPRESSION
  6. SOLANAX [Suspect]
     Indication: INSOMNIA
     Dosage: 2.4MG
     Route: 048
     Dates: start: 20060601, end: 20080318
  7. SOLANAX [Suspect]
     Indication: DEPRESSION
  8. TOLEDOMIN [Suspect]
     Indication: INSOMNIA
     Dosage: 200MG
     Route: 048
     Dates: start: 20060601, end: 20080318
  9. TOLEDOMIN [Suspect]
     Indication: DEPRESSION
  10. TETRAMIDE [Suspect]
     Indication: INSOMNIA
     Dosage: 60MG
     Route: 048
     Dates: start: 20060601, end: 20080318
  11. TETRAMIDE [Suspect]
     Indication: DEPRESSION
  12. DEPAS [Suspect]
     Indication: INSOMNIA
     Dosage: 1MG
     Route: 048
     Dates: start: 20060601, end: 20080318
  13. DEPAS [Suspect]
     Indication: DEPRESSION
  14. SERTRALINE HYDROCHLORIDE [Suspect]
     Indication: INSOMNIA
     Dosage: 100MG
     Route: 048
     Dates: start: 20071001, end: 20080318
  15. SERTRALINE HYDROCHLORIDE [Suspect]
     Indication: DEPRESSION
  16. ZEFIX [Concomitant]
  17. LASIX [Concomitant]
  18. TAKEPRON [Concomitant]

REACTIONS (3)
  - ASCITES [None]
  - HEPATIC NEOPLASM MALIGNANT [None]
  - HEPATITIS FULMINANT [None]
